FAERS Safety Report 11409596 (Version 1)
Quarter: 2015Q3

REPORT INFORMATION
  Report Type: Spontaneous
  Country: US (occurrence: None)
  Receive Date: 20150820
  Receipt Date: 20150820
  Transmission Date: 20151125
  Serious: Yes (Life-Threatening)
  Sender: FDA-Public Use
  Company Number: None

PATIENT
  Age: 14 Year
  Sex: Male
  Weight: 61.24 kg

DRUGS (3)
  1. LAMOTRIGENE [Concomitant]
     Active Substance: LAMOTRIGINE
  2. HYDROXYZINE 25MG WATSON PHARMACEUTICALS [Suspect]
     Active Substance: HYDROXYZINE HYDROCHLORIDE
     Indication: SLEEP DISORDER
     Dosage: 1 PILL
     Route: 048
     Dates: start: 20150809, end: 20150809
  3. LITHIUM CARBONATE. [Concomitant]
     Active Substance: LITHIUM CARBONATE

REACTIONS (2)
  - Suicidal ideation [None]
  - Affective disorder [None]

NARRATIVE: CASE EVENT DATE: 20150809
